FAERS Safety Report 6304103-6 (Version None)
Quarter: 2009Q3

REPORT INFORMATION
  Report Type: 
  Country: None (occurrence: None)
  Receive Date: 20090806
  Receipt Date: 20090731
  Transmission Date: 20100115
  Serious: No
  Sender: FDA-Public Use
  Company Number: 341144

PATIENT
  Age: 43 Year
  Sex: Male
  Weight: 133.81 kg

DRUGS (7)
  1. ROCURONIUM BROMIDE [Suspect]
     Indication: INDUCTION OF ANAESTHESIA
     Dates: start: 20090728, end: 20090728
  2. ZOLOFT [Concomitant]
  3. VERAPAMIL [Concomitant]
  4. LISINOPRIL [Concomitant]
  5. PRAVASTATIN [Concomitant]
  6. HYDROCHLOROTHIAZIDE [Concomitant]
  7. FENOFIBRATE [Concomitant]

REACTIONS (4)
  - ANAESTHETIC COMPLICATION [None]
  - DELAYED RECOVERY FROM ANAESTHESIA [None]
  - HYPOXIA [None]
  - MUSCULAR WEAKNESS [None]
